FAERS Safety Report 12214287 (Version 1)
Quarter: 2016Q1

REPORT INFORMATION
  Report Type: Spontaneous
  Country: None (occurrence: SE)
  Receive Date: 20160328
  Receipt Date: 20160328
  Transmission Date: 20160526
  Serious: Yes (Other)
  Sender: FDA-Public Use
  Company Number: SE-POPULATION COUNCIL, INC.-1049779

PATIENT
  Age: 18 Year
  Sex: Female
  Weight: 162 kg

DRUGS (1)
  1. NORPLANT [Suspect]
     Active Substance: LEVONORGESTREL
     Route: 058
     Dates: start: 20071003, end: 20071130

REACTIONS (2)
  - Implant site nerve injury [None]
  - Complication of device removal [None]
